FAERS Safety Report 9095408 (Version 1)
Quarter: 2013Q1

REPORT INFORMATION
  Report Type: Spontaneous
  Country: US (occurrence: US)
  Receive Date: 20130201
  Receipt Date: 20130201
  Transmission Date: 20140127
  Serious: No
  Sender: FDA-Public Use
  Company Number: US-PFIZER INC-2013037563

PATIENT
  Age: 56 Year
  Sex: Male
  Weight: 92.97 kg

DRUGS (1)
  1. VIAGRA [Suspect]
     Indication: ERECTILE DYSFUNCTION
     Dosage: 50 MG, AS NEEDED
     Route: 048
     Dates: start: 2006

REACTIONS (4)
  - Blood cholesterol increased [Unknown]
  - Weight decreased [Unknown]
  - Suspected counterfeit product [Unknown]
  - Drug ineffective [Unknown]
